FAERS Safety Report 19206025 (Version 1)
Quarter: 2021Q2

REPORT INFORMATION
  Report Type: Spontaneous
  Country: US (occurrence: US)
  Receive Date: 20210502
  Receipt Date: 20210502
  Transmission Date: 20210717
  Serious: No
  Sender: FDA-Public Use
  Company Number: None

PATIENT
  Age: 31 Year
  Sex: Female
  Weight: 59.88 kg

DRUGS (2)
  1. MIRENA [Suspect]
     Active Substance: LEVONORGESTREL
     Dates: end: 20210412
  2. WELLBUTRIN XL [Concomitant]
     Active Substance: BUPROPION HYDROCHLORIDE

REACTIONS (11)
  - Tinnitus [None]
  - Ear discomfort [None]
  - Nausea [None]
  - Weight decreased [None]
  - Hypophagia [None]
  - Fatigue [None]
  - Depression [None]
  - Balance disorder [None]
  - Anxiety [None]
  - Vision blurred [None]
  - Panic attack [None]

NARRATIVE: CASE EVENT DATE: 20210419
